FAERS Safety Report 9432671 (Version 12)
Quarter: 2020Q3

REPORT INFORMATION
  Report Type: Spontaneous
  Country: US (occurrence: US)
  Receive Date: 20130731
  Receipt Date: 20200818
  Transmission Date: 20201103
  Serious: Yes (Other)
  Sender: FDA-Public Use
  Company Number: US-PFIZER INC-2013219837

PATIENT
  Age: 61 Year
  Sex: Female
  Weight: 51.3 kg

DRUGS (13)
  1. PREMARIN [Suspect]
     Active Substance: ESTROGENS, CONJUGATED
     Indication: HORMONE REPLACEMENT THERAPY
     Dosage: 0.625 MG DAILY
     Route: 048
     Dates: end: 201903
  2. PREMARIN [Suspect]
     Active Substance: ESTROGENS, CONJUGATED
     Indication: CARDIAC DISORDER
  3. PREMARIN [Suspect]
     Active Substance: ESTROGENS, CONJUGATED
     Indication: BONE DISORDER
  4. ESTRADIOL. [Suspect]
     Active Substance: ESTRADIOL
     Indication: MOOD SWINGS
  5. ESTRADIOL. [Suspect]
     Active Substance: ESTRADIOL
     Indication: BONE DISORDER
  6. SYNTHROID [Concomitant]
     Active Substance: LEVOTHYROXINE SODIUM
     Indication: THYROID DISORDER
     Dosage: UNK, DAILY
     Dates: start: 1989
  7. DOXYCYCLINE. [Concomitant]
     Active Substance: DOXYCYCLINE
     Dosage: UNK, AS NEEDED
  8. PREMARIN [Suspect]
     Active Substance: ESTROGENS, CONJUGATED
     Indication: CRYING
  9. PREMARIN [Suspect]
     Active Substance: ESTROGENS, CONJUGATED
     Indication: HOT FLUSH
     Dosage: 0.625 MG, 1X/DAY
     Route: 048
     Dates: start: 1982
  10. ESTRADIOL. [Suspect]
     Active Substance: ESTRADIOL
     Indication: CRYING
  11. PREMARIN [Suspect]
     Active Substance: ESTROGENS, CONJUGATED
     Indication: MOOD SWINGS
     Dosage: 0.5 MG, UNK
     Route: 048
  12. ESTRADIOL. [Suspect]
     Active Substance: ESTRADIOL
     Indication: HOT FLUSH
     Dosage: 0.5 MG, DAILY
     Route: 048
     Dates: start: 20190305
  13. ESTRADIOL. [Suspect]
     Active Substance: ESTRADIOL
     Indication: CARDIAC DISORDER

REACTIONS (10)
  - Drug ineffective [Not Recovered/Not Resolved]
  - Feeling abnormal [Unknown]
  - Panic attack [Unknown]
  - Sleep disorder [Unknown]
  - Product colour issue [Unknown]
  - Fatigue [Unknown]
  - Post-traumatic stress disorder [Unknown]
  - Neoplasm malignant [Recovered/Resolved]
  - Product dispensing error [Unknown]
  - Wrong strength [Unknown]

NARRATIVE: CASE EVENT DATE: 201306
